FAERS Safety Report 14117310 (Version 2)
Quarter: 2017Q4

REPORT INFORMATION
  Report Type: Report from Study
  Country: None (occurrence: US)
  Receive Date: 20171023
  Receipt Date: 20171025
  Transmission Date: 20180321
  Serious: Yes (Hospitalization)
  Sender: FDA-Public Use
  Company Number: US-VIFOR (INTERNATIONAL) INC.-VIT-2017-10571

PATIENT
  Sex: Male

DRUGS (22)
  1. HUMALOG [Concomitant]
     Active Substance: INSULIN LISPRO
  2. ACETYLSALICYLIC ACID [Concomitant]
     Active Substance: ASPIRIN
  3. DEMADEX [Concomitant]
     Active Substance: TORSEMIDE
  4. DOXAZOSIN [Concomitant]
     Active Substance: DOXAZOSIN\DOXAZOSIN MESYLATE
  5. ISORDIL [Concomitant]
     Active Substance: ISOSORBIDE DINITRATE
  6. LEVEMIR [Concomitant]
     Active Substance: INSULIN DETEMIR
  7. SALBUTAMOL [Concomitant]
     Active Substance: ALBUTEROL
  8. VIAGRA [Concomitant]
     Active Substance: SILDENAFIL CITRATE
  9. AMIODARONE [Concomitant]
     Active Substance: AMIODARONE
  10. LIDOCAINE. [Concomitant]
     Active Substance: LIDOCAINE
  11. OMEPRAZOLE. [Concomitant]
     Active Substance: OMEPRAZOLE
  12. ATORVASTATIN [Concomitant]
     Active Substance: ATORVASTATIN
  13. IRON [Concomitant]
     Active Substance: IRON
  14. COLCRYS [Concomitant]
     Active Substance: COLCHICINE
  15. FLOMAX [Concomitant]
     Active Substance: TAMSULOSIN HYDROCHLORIDE
  16. HYDRALAZINE [Concomitant]
     Active Substance: HYDRALAZINE HYDROCHLORIDE
  17. LATANOPROST. [Concomitant]
     Active Substance: LATANOPROST
  18. VELTASSA [Suspect]
     Active Substance: PATIROMER
     Indication: HYPERKALAEMIA
     Dates: start: 201708
  19. ALLOPURINOL. [Concomitant]
     Active Substance: ALLOPURINOL
  20. CARVEDILOL. [Concomitant]
     Active Substance: CARVEDILOL
  21. CYCLOBENZAPRINE. [Concomitant]
     Active Substance: CYCLOBENZAPRINE
  22. ROPINIROLE. [Concomitant]
     Active Substance: ROPINIROLE

REACTIONS (1)
  - Renal failure [Not Recovered/Not Resolved]

NARRATIVE: CASE EVENT DATE: 2017
